FAERS Safety Report 14093174 (Version 1)
Quarter: 2017Q4

REPORT INFORMATION
  Report Type: Spontaneous
  Country: FR (occurrence: FR)
  Receive Date: 20171016
  Receipt Date: 20171016
  Transmission Date: 20180321
  Serious: Yes (Hospitalization)
  Sender: FDA-Public Use
  Company Number: FR-PFIZER INC-2017443566

PATIENT
  Age: 73 Year
  Sex: Female

DRUGS (7)
  1. CORDARONE [Suspect]
     Active Substance: AMIODARONE HYDROCHLORIDE
     Indication: ATRIAL FIBRILLATION
     Dosage: 200 MG, 1X/DAY
     Route: 048
     Dates: start: 201704, end: 20170605
  2. RAMIPRIL. [Suspect]
     Active Substance: RAMIPRIL
     Indication: HYPERTENSION
     Dosage: 2.5 MG, UNK
     Route: 048
     Dates: start: 201704
  3. TEMERIT [Suspect]
     Active Substance: NEBIVOLOL
     Indication: HYPERTENSION
     Dosage: 5 MG, 1X/DAY
     Route: 048
     Dates: start: 2013
  4. LASILIX [Suspect]
     Active Substance: FUROSEMIDE
     Indication: HYPERTENSION
     Dosage: 40 MG, 1X/DAY
     Route: 048
     Dates: start: 201704
  5. LASILIX [Suspect]
     Active Substance: FUROSEMIDE
     Dosage: 20 MG, 1X/DAY
     Route: 048
     Dates: start: 20170610
  6. PREVISCAN (FLUINDIONE) [Suspect]
     Active Substance: FLUINDIONE
     Indication: ATRIAL FIBRILLATION
     Dosage: 20 MG, UNK
     Route: 048
     Dates: start: 201704, end: 20170610
  7. TEMERIT [Suspect]
     Active Substance: NEBIVOLOL
     Dosage: 2.5 MG, DAILY
     Route: 048
     Dates: start: 20170610

REACTIONS (8)
  - Confusional state [Recovered/Resolved]
  - Headache [Unknown]
  - Hyponatraemia [Not Recovered/Not Resolved]
  - Disorientation [Recovered/Resolved]
  - Vomiting projectile [Unknown]
  - Thyroxine free increased [Unknown]
  - Abnormal behaviour [Unknown]
  - Back pain [Unknown]

NARRATIVE: CASE EVENT DATE: 20170608
